FAERS Safety Report 6757207-8 (Version None)
Quarter: 2010Q2

REPORT INFORMATION
  Report Type: 
  Country: None (occurrence: None)
  Receive Date: 20100607
  Receipt Date: 20100527
  Transmission Date: 20101027
  Serious: Yes (Hospitalization)
  Sender: FDA-Public Use
  Company Number: US-BIOGENIDEC-2010BI017480

PATIENT
  Age: 45 Year
  Sex: Male
  Weight: 104 kg

DRUGS (2)
  1. AVONEX [Suspect]
     Indication: MULTIPLE SCLEROSIS
     Route: 030
     Dates: start: 19980601, end: 20030101
  2. AVONEX [Suspect]
     Route: 030
     Dates: start: 20030101

REACTIONS (5)
  - ACCIDENT [None]
  - FEMUR FRACTURE [None]
  - PELVIC FRACTURE [None]
  - RIB FRACTURE [None]
  - SKIN LACERATION [None]
